FAERS Safety Report 17788505 (Version 2)
Quarter: 2020Q3

REPORT INFORMATION
  Report Type: Spontaneous
  Country: US (occurrence: US)
  Receive Date: 20200515
  Receipt Date: 20200829
  Transmission Date: 20201102
  Serious: No
  Sender: FDA-Public Use
  Company Number: US-009507513-2005USA003621

PATIENT
  Age: 17 Year
  Sex: Female
  Weight: 68.03 kg

DRUGS (2)
  1. NUVARING [Suspect]
     Active Substance: ETHINYL ESTRADIOL\ETONOGESTREL
     Indication: METRORRHAGIA
     Dosage: IMPLANT
     Route: 067
     Dates: start: 20191212, end: 20200430
  2. NEXPLANON [Suspect]
     Active Substance: ETONOGESTREL
     Indication: CONTRACEPTION
     Dosage: 1 IMPLANT, CONTINUOUS
     Route: 059
     Dates: start: 20190625, end: 20200603

REACTIONS (9)
  - Migraine [Recovered/Resolved]
  - Product use in unapproved indication [Unknown]
  - Dysmenorrhoea [Recovered/Resolved]
  - Metrorrhagia [Not Recovered/Not Resolved]
  - Menstruation delayed [Recovered/Resolved]
  - Menorrhagia [Unknown]
  - Inappropriate schedule of product administration [Unknown]
  - Menstruation irregular [Recovered/Resolved]
  - Drug ineffective for unapproved indication [Unknown]

NARRATIVE: CASE EVENT DATE: 201909
